FAERS Safety Report 4798907-9 (Version None)
Quarter: 2005Q4

REPORT INFORMATION
  Report Type: 
  Country: None (occurrence: None)
  Receive Date: 20051014
  Receipt Date: 20051003
  Transmission Date: 20060501
  Serious: Yes (Disabling)
  Sender: FDA-Public Use
  Company Number: FR-BRISTOL-MYERS SQUIBB COMPANY-13134234

PATIENT
  Age: 24 Year
  Sex: Female
  Weight: 50 kg

DRUGS (1)
  1. KENACORT [Suspect]
     Route: 030
     Dates: start: 20040915, end: 20040915

REACTIONS (3)
  - MUSCLE ATROPHY [None]
  - PAIN [None]
  - WEIGHT DECREASED [None]
